FAERS Safety Report 14152317 (Version 1)
Quarter: 2017Q4

REPORT INFORMATION
  Report Type: Report from Study
  Country: US (occurrence: US)
  Receive Date: 20171102
  Receipt Date: 20171102
  Transmission Date: 20180321
  Serious: Yes (Other)
  Sender: FDA-Public Use
  Company Number: US-JNJFOC-20170500804

PATIENT
  Age: 46 Year
  Sex: Male

DRUGS (6)
  1. IMBRUVICA [Suspect]
     Active Substance: IBRUTINIB
     Indication: MANTLE CELL LYMPHOMA
     Route: 048
     Dates: start: 20170415
  2. TYLENOL [Concomitant]
     Active Substance: ACETAMINOPHEN
  3. LOSARTAN POTASSIUM. [Concomitant]
     Active Substance: LOSARTAN POTASSIUM
  4. IMBRUVICA [Suspect]
     Active Substance: IBRUTINIB
     Indication: MANTLE CELL LYMPHOMA
     Route: 048
     Dates: start: 20170414
  5. RITUXAN [Concomitant]
     Active Substance: RITUXIMAB
  6. IMBRUVICA [Suspect]
     Active Substance: IBRUTINIB
     Indication: MANTLE CELL LYMPHOMA
     Route: 048
     Dates: start: 20170423

REACTIONS (14)
  - Product use complaint [Not Recovered/Not Resolved]
  - Oropharyngeal pain [Unknown]
  - Gastrooesophageal reflux disease [Not Recovered/Not Resolved]
  - Neck pain [Unknown]
  - Weight increased [Not Recovered/Not Resolved]
  - Throat irritation [Unknown]
  - Spinal cord disorder [Unknown]
  - Upper respiratory tract congestion [Unknown]
  - Ear pain [Unknown]
  - Dysgeusia [Unknown]
  - Odynophagia [Unknown]
  - Oral pain [Unknown]
  - Vomiting [Unknown]
  - Mass [Unknown]

NARRATIVE: CASE EVENT DATE: 201704
